FAERS Safety Report 5608203-5 (Version None)
Quarter: 2008Q1

REPORT INFORMATION
  Report Type: 
  Country: None (occurrence: None)
  Receive Date: 20080130
  Receipt Date: 20080115
  Transmission Date: 20080703
  Serious: Yes (Hospitalization)
  Sender: FDA-Public Use
  Company Number: GB-ROCHE-541793

PATIENT
  Age: 71 Year
  Sex: Female
  Weight: 88.9 kg

DRUGS (8)
  1. ORLISTAT [Suspect]
     Indication: OBESITY
     Route: 048
     Dates: start: 20070801
  2. METFORMIN HCL [Concomitant]
     Route: 048
  3. ISOSORBIDE DINITRATE [Concomitant]
     Indication: ANGINA PECTORIS
     Route: 048
  4. LEVOTHYROXINE SODIUM [Concomitant]
     Indication: HYPOTHYROIDISM
     Route: 048
  5. LISINOPRIL [Concomitant]
     Indication: HYPERTENSION
     Dosage: FREQUENCY: 10 MG AND 5 MG
     Route: 048
  6. ASPIRIN [Concomitant]
     Route: 048
  7. SIMVASTATIN [Concomitant]
     Route: 048
  8. NITROLINGUAL [Concomitant]
     Indication: ANGINA PECTORIS
     Dosage: FORM: INHALER SPRAY
     Route: 055
     Dates: start: 20050701

REACTIONS (2)
  - ANAEMIA [None]
  - HEART RATE DECREASED [None]
